FAERS Safety Report 4309828-X (Version None)
Quarter: 2004Q1

REPORT INFORMATION
  Report Type: 
  Country: None (occurrence: None)
  Receive Date: 20040301
  Receipt Date: 20031003
  Transmission Date: 20041129
  Serious: Yes (Hospitalization)
  Sender: FDA-Public Use
  Company Number: 03-000244

PATIENT
  Age: 44 Year
  Sex: Female
  Weight: 104.3 kg

DRUGS (2)
  1. ESTRACT (ESTRADIOL, ESTRADIOL) CREAM, .01% [Suspect]
     Indication: ATROPHIC VULVITIS
     Dosage: 1 G, QOD, VAGINAL
     Route: 067
     Dates: start: 20030401, end: 20030819
  2. THIPHASIL (LEVONORGESTREL) [Concomitant]

REACTIONS (3)
  - CHEST DISCOMFORT [None]
  - DYSPNOEA [None]
  - PULMONARY EMBOLISM [None]
